FAERS Safety Report 5806727-9 (Version None)
Quarter: 2008Q3

REPORT INFORMATION
  Report Type: 
  Country: None (occurrence: None)
  Receive Date: 20080709
  Receipt Date: 20080709
  Transmission Date: 20090109
  Serious: Yes (Hospitalization)
  Sender: FDA-Public Use
  Company Number: None

PATIENT
  Age: 45 Year
  Sex: Female
  Weight: 90.7194 kg

DRUGS (1)
  1. AMIDATE [Suspect]
     Indication: SEDATIVE THERAPY
     Dosage: 15MG ONCE IV BOLUS
     Route: 040
     Dates: start: 20080701, end: 20080708

REACTIONS (2)
  - AGGRESSION [None]
  - CONFUSIONAL STATE [None]
